FAERS Safety Report 5374718-0 (Version None)
Quarter: 2007Q2

REPORT INFORMATION
  Report Type: 
  Country: None (occurrence: None)
  Receive Date: 20070627
  Receipt Date: 20070627
  Transmission Date: 20071010
  Serious: No
  Sender: FDA-Public Use
  Company Number: None

PATIENT
  Age: 55 Year
  Sex: Female
  Weight: 113.3993 kg

DRUGS (1)
  1. GLIPIZIDE [Suspect]
     Indication: DIABETES MELLITUS NON-INSULIN-DEPENDENT
     Dosage: 10MG BID PO
     Route: 048
     Dates: start: 20070607, end: 20070610

REACTIONS (2)
  - PHARMACEUTICAL PRODUCT COMPLAINT [None]
  - POLLAKIURIA [None]
